FAERS Safety Report 18408971 (Version 3)
Quarter: 2021Q1

REPORT INFORMATION
  Report Type: Spontaneous
  Country: US (occurrence: US)
  Receive Date: 20201021
  Receipt Date: 20210204
  Transmission Date: 20210419
  Serious: Yes (Other)
  Sender: FDA-Public Use
  Company Number: US-GILEAD-2020-0499782

PATIENT
  Sex: Female
  Weight: 105.67 kg

DRUGS (22)
  1. DESCOVY [Concomitant]
     Active Substance: EMTRICITABINE\TENOFOVIR ALAFENAMIDE FUMARATE
  2. PREZCOBIX [Concomitant]
     Active Substance: COBICISTAT\DARUNAVIR ETHANOLATE
  3. WELLBUTRIN [Concomitant]
     Active Substance: BUPROPION HYDROCHLORIDE
  4. VITAMIN D NOS [Concomitant]
     Active Substance: VITAMIN D NOS
  5. BIKTARVY [Concomitant]
     Active Substance: BICTEGRAVIR SODIUM\EMTRICITABINE\TENOFOVIR ALAFENAMIDE FUMARATE
  6. ISENTRESS [Concomitant]
     Active Substance: RALTEGRAVIR POTASSIUM
  7. AMLODIPINE [Concomitant]
     Active Substance: AMLODIPINE BESYLATE
  8. DICLOFENAC [Concomitant]
     Active Substance: DICLOFENAC
  9. OZEMPIC [Concomitant]
     Active Substance: SEMAGLUTIDE
  10. NORVIR [Concomitant]
     Active Substance: RITONAVIR
  11. TRAZODONE [Concomitant]
     Active Substance: TRAZODONE HYDROCHLORIDE
  12. VITAMIN B1+B6+B12 [Concomitant]
  13. ASPIRIN [ACETYLSALICYLIC ACID] [Concomitant]
     Active Substance: ASPIRIN
  14. FOLIC ACID. [Concomitant]
     Active Substance: FOLIC ACID
  15. TRUVADA [Suspect]
     Active Substance: EMTRICITABINE\TENOFOVIR DISOPROXIL FUMARATE
     Indication: HIV INFECTION
     Dosage: UNK
     Route: 048
     Dates: start: 200905, end: 2017
  16. ALBUTEROL HFA [Concomitant]
     Active Substance: ALBUTEROL SULFATE
  17. LAMOTRIGINE. [Concomitant]
     Active Substance: LAMOTRIGINE
  18. LYRICA [Concomitant]
     Active Substance: PREGABALIN
  19. PREZISTA [Concomitant]
     Active Substance: DARUNAVIR ETHANOLATE
  20. TRIUMEQ [Concomitant]
     Active Substance: ABACAVIR SULFATE\DOLUTEGRAVIR SODIUM\LAMIVUDINE
  21. EDURANT [Concomitant]
     Active Substance: RILPIVIRINE HYDROCHLORIDE
  22. HYDROCODONE [Concomitant]
     Active Substance: HYDROCODONE

REACTIONS (7)
  - Anhedonia [Not Recovered/Not Resolved]
  - Bipolar disorder [Not Recovered/Not Resolved]
  - Protein urine present [Unknown]
  - Osteoporosis [Not Recovered/Not Resolved]
  - Mobility decreased [Not Recovered/Not Resolved]
  - Pain [Not Recovered/Not Resolved]
  - Emotional distress [Not Recovered/Not Resolved]

NARRATIVE: CASE EVENT DATE: 2015
